FAERS Safety Report 17916754 (Version 1)
Quarter: 2020Q2

REPORT INFORMATION
  Report Type: Spontaneous
  Country: CN (occurrence: CN)
  Receive Date: 20200619
  Receipt Date: 20200619
  Transmission Date: 20200714
  Serious: Yes (Hospitalization)
  Sender: FDA-Public Use
  Company Number: CN-ASTRAZENECA-2020SE77548

PATIENT
  Age: 17623 Day
  Sex: Female
  Weight: 60 kg

DRUGS (2)
  1. TERBUTALINE SULFATE. [Concomitant]
     Active Substance: TERBUTALINE SULFATE
     Indication: BILIARY COLIC
     Route: 055
     Dates: start: 20200610
  2. PULMICORT TURBUHALER [Suspect]
     Active Substance: BUDESONIDE
     Indication: MUSCLE SPASMS
     Route: 055
     Dates: start: 20200610

REACTIONS (6)
  - Dyspnoea [Recovered/Resolved]
  - Heart rate increased [Recovered/Resolved]
  - Discomfort [Recovering/Resolving]
  - Dysphoria [Recovered/Resolved]
  - Pallor [Recovered/Resolved]
  - Malaise [Unknown]

NARRATIVE: CASE EVENT DATE: 20200610
